FAERS Safety Report 6673233-1 (Version None)
Quarter: 2010Q2

REPORT INFORMATION
  Report Type: 
  Country: None (occurrence: None)
  Receive Date: 20100408
  Receipt Date: 20100329
  Transmission Date: 20101027
  Serious: Yes (Death)
  Sender: FDA-Public Use
  Company Number: JP-MPIJNJ-2010-01951

PATIENT

DRUGS (2)
  1. VELCADE [Suspect]
     Indication: MULTIPLE MYELOMA
     Dosage: 1.5 MG, UNK
     Route: 042
     Dates: start: 20100321, end: 20100321
  2. DECADRON [Concomitant]
     Indication: MULTIPLE MYELOMA
     Dosage: 40 MG, UNK
     Route: 042
     Dates: start: 20100316, end: 20100322

REACTIONS (1)
  - TUMOUR LYSIS SYNDROME [None]
